FAERS Safety Report 15230063 (Version 1)
Quarter: 2018Q3

REPORT INFORMATION
  Report Type: Spontaneous
  Country: US (occurrence: US)
  Receive Date: 20180802
  Receipt Date: 20180802
  Transmission Date: 20181010
  Serious: Yes (Other)
  Sender: FDA-Public Use
  Company Number: US-ACCORD-063013

PATIENT
  Age: 55 Year
  Sex: Female

DRUGS (9)
  1. DOCETAXEL ACCORD [Suspect]
     Active Substance: DOCETAXEL
     Indication: BREAST CANCER
     Dates: start: 20121023, end: 20130205
  2. CALCIUM/COLECALCIFEROL [Concomitant]
     Dosage: STRENGTH: 600 MG?600 MG CAPSULE ORAL DAILY
     Route: 048
  3. KLOR?CON M20 [Concomitant]
     Active Substance: POTASSIUM CHLORIDE
     Dosage: STRENGTH: 20 MEQ?2 (20 MEQ) TABLET ORAL DAILY FOR 30 DAYS
     Route: 048
  4. CYTOXAN [Suspect]
     Active Substance: CYCLOPHOSPHAMIDE
     Indication: BREAST CANCER
  5. ORACEA [Concomitant]
     Active Substance: DOXYCYCLINE
     Dosage: STRENGTH: 40 MG?40 MG CAPSULE DELAYED RELEASE ORAL DAILY
     Route: 048
     Dates: start: 2004, end: 2014
  6. CHONDROITIN [Concomitant]
     Active Substance: CHONDROITIN
     Dosage: STRENGTH: 1200 MG?1200 MG CAPSULE ORAL DAILY
     Route: 048
  7. HYDROCHLOROTHIAZIDE/TRIAMTERENE [Concomitant]
     Dosage: STRENGTH: 37.5 MG (OF 37.5 ? 25 MG)?37.5 MG (OF 37.5 ? 25 MG) ORAL DAILY
     Route: 048
  8. CEFALEXIN [Concomitant]
     Active Substance: CEPHALEXIN
     Dosage: STRENGTH: 500 MG?500 MG TABLET ORAL TID
     Route: 048
  9. GLUCOSAMINE [Concomitant]
     Active Substance: GLUCOSAMINE
     Dosage: STRENGTH: 1500 MG?1500 MG TABLET ORAL DAILY
     Route: 048

REACTIONS (1)
  - Alopecia [Not Recovered/Not Resolved]

NARRATIVE: CASE EVENT DATE: 2012
